FAERS Safety Report 10660548 (Version 2)
Quarter: 2014Q4

REPORT INFORMATION
  Report Type: Report from Study
  Country: US (occurrence: US)
  Receive Date: 20141217
  Receipt Date: 20141217
  Transmission Date: 20150529
  Serious: No
  Sender: FDA-Public Use
  Company Number: US-TEVA-526511USA

PATIENT
  Sex: Female

DRUGS (2)
  1. AMNESTEEM [Concomitant]
     Active Substance: ISOTRETINOIN
  2. CLARAVIS [Suspect]
     Active Substance: ISOTRETINOIN
     Route: 048

REACTIONS (1)
  - Drug ineffective [Unknown]
